FAERS Safety Report 8600487-4 (Version None)
Quarter: 2012Q3

REPORT INFORMATION
  Report Type: 
  Country: None (occurrence: None)
  Receive Date: 20120802
  Receipt Date: 20120719
  Transmission Date: 20120928
  Serious: Yes (Other)
  Sender: FDA-Public Use
  Company Number: 2012MA009196

PATIENT
  Age: 64 Year
  Sex: Male

DRUGS (14)
  1. RAMIPRIL [Suspect]
     Dates: start: 20120327
  2. IVABRADINE [Concomitant]
  3. HUMAN INSULATARD [Concomitant]
  4. ACETYLSALICYLIC ACID SRT [Concomitant]
  5. BISOPROLOL FUMARATE [Concomitant]
  6. GLICLAZIDE [Concomitant]
  7. MONONITRATE [Concomitant]
  8. CLOPIDEGREL [Concomitant]
  9. TAMSULOSIN HCL [Concomitant]
  10. SITAGLIPTIN [Concomitant]
  11. NITROGLYCERIN [Concomitant]
  12. ISOSORBIDE [Concomitant]
  13. ATORVASTATIN [Concomitant]
  14. DILTIAZEM [Concomitant]

REACTIONS (4)
  - ANAPHYLACTOID REACTION [None]
  - LIP SWELLING [None]
  - PARAESTHESIA [None]
  - SWOLLEN TONGUE [None]
